FAERS Safety Report 12931877 (Version 9)
Quarter: 2019Q2

REPORT INFORMATION
  Report Type: Report from Study
  Country: DE (occurrence: DE)
  Receive Date: 20161111
  Receipt Date: 20190522
  Transmission Date: 20190711
  Serious: Yes (Death, Hospitalization)
  Sender: FDA-Public Use
  Company Number: DE-ROCHE-1853231

PATIENT
  Age: 66 Year
  Sex: Male

DRUGS (4)
  1. PREDNISOLON [PREDNISOLONE] [Concomitant]
     Active Substance: PREDNISOLONE
     Dosage: DAYS
     Route: 065
  2. CORTISONE [Concomitant]
     Active Substance: CORTISONE\HYDROCORTISONE
     Route: 065
  3. ESBRIET [Suspect]
     Active Substance: PIRFENIDONE
     Indication: IDIOPATHIC PULMONARY FIBROSIS
     Dosage: 3 CAPSULES?3-3-3
     Route: 048
     Dates: start: 20140208
  4. OXYGEN. [Concomitant]
     Active Substance: OXYGEN
     Dosage: 1-4 L, MINUTES, 6 L DAYS
     Route: 065

REACTIONS (11)
  - Death [Fatal]
  - Infection [Recovering/Resolving]
  - Pulmonary congestion [Recovering/Resolving]
  - Dyspnoea exertional [Not Recovered/Not Resolved]
  - Pneumonitis [Not Recovered/Not Resolved]
  - Nasopharyngitis [Recovering/Resolving]
  - Dyspnoea [Recovering/Resolving]
  - Bronchial secretion retention [Recovering/Resolving]
  - Bronchitis [Recovered/Resolved]
  - Productive cough [Not Recovered/Not Resolved]
  - General physical health deterioration [Unknown]

NARRATIVE: CASE EVENT DATE: 201610
